FAERS Safety Report 7646339-8 (Version None)
Quarter: 2011Q3

REPORT INFORMATION
  Report Type: 
  Country: None (occurrence: None)
  Receive Date: 20110725
  Receipt Date: 20110707
  Transmission Date: 20111222
  Serious: Yes (Other)
  Sender: FDA-Public Use
  Company Number: JHP201100340

PATIENT
  Age: 8 Year
  Sex: Female

DRUGS (5)
  1. ROCURONIUM BROMIDE [Concomitant]
  2. SEVOFLURANE [Concomitant]
  3. DANTROLENE SODIUM [Suspect]
     Indication: HYPERTHERMIA MALIGNANT
     Dosage: 285 MG, TOTAL, INTRAVENOUS
     Route: 042
  4. MIDAZOLAM HYDROCHLORIDE [Concomitant]
  5. ACETAMINOPHEN [Concomitant]

REACTIONS (2)
  - CARDIAC DISORDER [None]
  - PHLEBITIS [None]
